FAERS Safety Report 9955675 (Version 1)
Quarter: 2014Q1

REPORT INFORMATION
  Report Type: Spontaneous
  Country: US (occurrence: US)
  Receive Date: 20140304
  Receipt Date: 20140304
  Transmission Date: 20141002
  Serious: No
  Sender: FDA-Public Use
  Company Number: US-ABBVIE-13P-163-1090119-00

PATIENT
  Sex: 0

DRUGS (2)
  1. HUMIRA [Suspect]
     Indication: PUSTULAR PSORIASIS
  2. HUMIRA [Suspect]
     Indication: SKIN PLAQUE

REACTIONS (2)
  - Skin plaque [Unknown]
  - Pustular psoriasis [Unknown]
